FAERS Safety Report 8688322 (Version 3)
Quarter: 2013Q4

REPORT INFORMATION
  Report Type: Spontaneous
  Country: US (occurrence: US)
  Receive Date: 20120727
  Receipt Date: 20131101
  Transmission Date: 20140711
  Serious: No
  Sender: FDA-Public Use
  Company Number: US-009507513-2012SP036225

PATIENT
  Age: 53 Year
  Sex: Female

DRUGS (5)
  1. CLARITIN-D-24 [Suspect]
     Indication: SNEEZING
     Dosage: 10 MG, ONCE
     Route: 048
     Dates: start: 20120502, end: 20120503
  2. CLARITIN-D-24 [Suspect]
     Indication: RHINORRHOEA
  3. LEVETIRACETAM [Concomitant]
     Indication: CONVULSION
     Dosage: 500 MG, BID
  4. DIVALPROEX SODIUM [Concomitant]
     Indication: CONVULSION
     Dosage: 750 MG, QD
  5. VIMPAT [Concomitant]
     Indication: CONVULSION
     Dosage: 200 MG, BID

REACTIONS (2)
  - Diplopia [Recovered/Resolved]
  - Dizziness [Recovered/Resolved]
